FAERS Safety Report 8145233-6 (Version None)
Quarter: 2012Q1

REPORT INFORMATION
  Report Type: 
  Country: None (occurrence: None)
  Receive Date: 20120217
  Receipt Date: 20120216
  Transmission Date: 20120608
  Serious: Yes (Other)
  Sender: FDA-Public Use
  Company Number: US-PFIZER INC-2012042509

PATIENT
  Sex: Female
  Weight: 117 kg

DRUGS (11)
  1. GEODON [Concomitant]
     Indication: DEPRESSION
     Dosage: UNK
  2. FOLIC ACID [Concomitant]
     Dosage: UNK
  3. VITAMIN B6 [Concomitant]
     Dosage: UNK
  4. CHANTIX [Suspect]
     Indication: SMOKING CESSATION THERAPY
     Dosage: 0.5 MG, 1X/DAY
     Route: 048
     Dates: start: 20111225
  5. MELOXICAM [Concomitant]
     Indication: ARTHRITIS
     Dosage: UNK
  6. VICODIN [Concomitant]
     Indication: PAIN
     Dosage: UNK
  7. VITAMIN D [Concomitant]
     Dosage: UNK
  8. CHANTIX [Suspect]
     Dosage: 1 MG, 2X/DAY
     Route: 048
  9. CLONAZEPAM [Concomitant]
     Indication: DEPRESSION
     Dosage: UNK
  10. CITALOPRAM [Concomitant]
     Indication: ANXIETY
     Dosage: UNK
  11. VITAMIN B-12 [Concomitant]
     Dosage: UNK

REACTIONS (4)
  - ABNORMAL DREAMS [None]
  - SLEEP DISORDER [None]
  - HEADACHE [None]
  - IRRITABILITY [None]
